FAERS Safety Report 8924900 (Version 1)
Quarter: 2012Q4

REPORT INFORMATION
  Report Type: 
  Country: US (occurrence: US)
  Receive Date: 20121126
  Receipt Date: 20121126
  Transmission Date: 20130627
  Serious: No
  Sender: FDA-Public Use
  Company Number: US-009507513-1211USA010018

PATIENT
  Age: 87 Year
  Sex: Female

DRUGS (3)
  1. NASONEX [Suspect]
     Indication: SEASONAL ALLERGY
     Dosage: Two sprays each nostril, qd
     Route: 045
     Dates: start: 201208, end: 20120928
  2. ASPIRIN [Concomitant]
  3. PLAVIX [Concomitant]

REACTIONS (1)
  - Glaucoma [Unknown]
